FAERS Safety Report 22008762 (Version 2)
Quarter: 2023Q1

REPORT INFORMATION
  Report Type: Spontaneous
  Country: US (occurrence: US)
  Receive Date: 20230219
  Receipt Date: 20230220
  Transmission Date: 20230417
  Serious: No
  Sender: FDA-Public Use
  Company Number: US-JNJFOC-20230236467

PATIENT
  Age: 8 Decade
  Sex: Female

DRUGS (1)
  1. MOTRIN [Suspect]
     Active Substance: IBUPROFEN
     Indication: Arthritis
     Dosage: TAKING A YEAR AND HALF AGO
     Route: 065

REACTIONS (1)
  - Drug ineffective [Unknown]
